FAERS Safety Report 14761352 (Version 2)
Quarter: 2018Q2

REPORT INFORMATION
  Report Type: Report from Study
  Country: US (occurrence: US)
  Receive Date: 20180415
  Receipt Date: 20180620
  Transmission Date: 20180711
  Serious: Yes (Other)
  Sender: FDA-Public Use
  Company Number: PHEH2018US013607

PATIENT
  Sex: Male

DRUGS (1)
  1. COSENTYX [Suspect]
     Active Substance: SECUKINUMAB
     Indication: PSORIASIS
     Dosage: UNK UNK, QMO
     Route: 058

REACTIONS (4)
  - Cerebrovascular accident [Recovering/Resolving]
  - Nephrolithiasis [Unknown]
  - Dysphemia [Unknown]
  - Confusional state [Unknown]
